FAERS Safety Report 13816876 (Version 1)
Quarter: 2017Q3

REPORT INFORMATION
  Report Type: Spontaneous
  Country: US (occurrence: US)
  Receive Date: 20170731
  Receipt Date: 20170731
  Transmission Date: 20171127
  Serious: No
  Sender: FDA-Public Use
  Company Number: US-JNJFOC-20170709311

PATIENT
  Age: 71 Year
  Sex: Female
  Weight: 77.11 kg

DRUGS (3)
  1. RHINOCORT ALLERGY [Concomitant]
     Active Substance: BUDESONIDE
     Indication: MULTIPLE ALLERGIES
     Route: 055
     Dates: start: 20170710, end: 20170710
  2. ZYRTEC [Suspect]
     Active Substance: CETIRIZINE HYDROCHLORIDE
     Route: 065
  3. ZYRTEC [Suspect]
     Active Substance: CETIRIZINE HYDROCHLORIDE
     Indication: MULTIPLE ALLERGIES
     Route: 065

REACTIONS (2)
  - Somnolence [Unknown]
  - Product quality issue [Unknown]
